FAERS Safety Report 8952564 (Version 1)
Quarter: 2012Q4

REPORT INFORMATION
  Report Type: 
  Country: US (occurrence: US)
  Receive Date: 20121205
  Receipt Date: 20121205
  Transmission Date: 20130627
  Serious: No
  Sender: FDA-Public Use
  Company Number: US-B.I. PHARMACEUTICALS,INC./RIDGEFIELD-2012-BI-01444BP

PATIENT
  Age: 56 None
  Sex: Female
  Weight: 54 kg

DRUGS (3)
  1. SPIRIVA [Suspect]
     Indication: CHRONIC OBSTRUCTIVE PULMONARY DISEASE
     Dosage: 18 mcg
     Route: 055
     Dates: start: 2010, end: 2010
  2. SPIRIVA [Suspect]
     Dosage: 18 mcg
     Route: 055
     Dates: start: 20121112, end: 20121117
  3. SYMBICORT [Concomitant]
     Indication: CHRONIC OBSTRUCTIVE PULMONARY DISEASE
     Dosage: 160 mg
     Route: 055
     Dates: start: 2009

REACTIONS (10)
  - Heart rate increased [Recovered/Resolved]
  - Headache [Recovered/Resolved]
  - Respiratory tract infection [Not Recovered/Not Resolved]
  - Wheezing [Not Recovered/Not Resolved]
  - Asthenia [Not Recovered/Not Resolved]
  - Gastritis [Not Recovered/Not Resolved]
  - Cough [Not Recovered/Not Resolved]
  - Nasal congestion [Not Recovered/Not Resolved]
  - Abdominal rigidity [Not Recovered/Not Resolved]
  - Abdominal hernia [Not Recovered/Not Resolved]
